FAERS Safety Report 17333052 (Version 1)
Quarter: 2020Q1

REPORT INFORMATION
  Report Type: Spontaneous
  Country: US (occurrence: US)
  Receive Date: 20200113
  Receipt Date: 20200113
  Transmission Date: 20200409
  Serious: Yes (Hospitalization)
  Sender: FDA-Public Use
  Company Number: None

PATIENT
  Age: 64 Year
  Sex: Female

DRUGS (5)
  1. XGEVA [Concomitant]
     Active Substance: DENOSUMAB
  2. LETROZOLE 2.5MG TAB [Suspect]
     Active Substance: LETROZOLE
     Indication: BREAST CANCER
     Dates: start: 20180613
  3. VITAMIN D [Concomitant]
     Active Substance: VITAMIN D NOS
  4. IBRANCE [Suspect]
     Active Substance: PALBOCICLIB
     Indication: BREAST CANCER
     Dates: start: 20171229
  5. CALCIUM [Concomitant]
     Active Substance: CALCIUM

REACTIONS (3)
  - Hepatic enzyme increased [None]
  - Hepatic infection [None]
  - Cholelithiasis [None]

NARRATIVE: CASE EVENT DATE: 20200103
